FAERS Safety Report 5106480-0 (Version None)
Quarter: 2006Q3

REPORT INFORMATION
  Report Type: 
  Country: None (occurrence: None)
  Receive Date: 20060918
  Receipt Date: 20060825
  Transmission Date: 20061208
  Serious: Yes (Hospitalization, Other)
  Sender: FDA-Public Use
  Company Number: JP-NOVOPROD-256372

PATIENT
  Age: 48 Year
  Sex: Male
  Weight: 76 kg

DRUGS (19)
  1. NOVOSEVEN [Suspect]
     Indication: CEREBRAL HAEMORRHAGE
     Dosage: 80 UG/KG, UNK
     Route: 042
     Dates: start: 20060821, end: 20060821
  2. SOLITA-T NO.2 [Concomitant]
     Indication: DEHYDRATION
     Dosage: 1881 ML, QD
     Route: 042
     Dates: start: 20060821, end: 20060826
  3. NEOLAMIN 3B                        /00520001/ [Concomitant]
     Indication: VITAMIN SUPPLEMENTATION
     Dosage: 10 ML, QD
     Route: 042
     Dates: start: 20060822, end: 20060828
  4. PERDIPINE [Concomitant]
     Indication: HYPERTENSION
     Dosage: 60 MG, UNK
     Dates: start: 20060824
  5. PERDIPINE [Concomitant]
     Dosage: 160 ML, QD
     Route: 042
     Dates: start: 20060821, end: 20060906
  6. PERDIPINE [Concomitant]
     Dosage: 80 MG, QD
     Route: 048
     Dates: start: 20060823, end: 20060823
  7. GLYCEOL [Concomitant]
     Indication: OEDEMA
     Dosage: 500 ML, QD
     Route: 042
     Dates: start: 20060822
  8. MANNITOL [Concomitant]
     Indication: OEDEMA
     Dosage: 200 ML, QD
     Route: 042
     Dates: start: 20060823, end: 20060901
  9. GASTER [Concomitant]
     Indication: STRESS ULCER
     Dosage: 20 MG, QD
     Route: 042
     Dates: start: 20060821, end: 20060902
  10. SALINA                             /00070301/ [Concomitant]
     Dosage: 20 ML, QD
     Route: 042
     Dates: start: 20060821
  11. VASOLATOR [Concomitant]
     Dosage: 12 UNK, QD
     Route: 062
     Dates: start: 20060821
  12. FLUITRAN [Concomitant]
     Indication: HYPERTENSION
  13. LASIX                              /00032601/ [Concomitant]
     Indication: POLYURIA
     Dosage: 5 MG, QD
     Route: 042
     Dates: start: 20060826
  14. GASTER D [Concomitant]
     Indication: STRESS ULCER
  15. CARDENALIN [Concomitant]
     Indication: HYPERTENSION
  16. CALSLOT [Concomitant]
     Indication: VASODILATATION
     Dosage: 10 MG, QD
     Route: 045
     Dates: start: 20060902
  17. ASPARA K                           /00466901/ [Concomitant]
     Indication: MINERAL SUPPLEMENTATION
     Dosage: 1500 MG, QD
     Route: 045
     Dates: start: 20060908
  18. ASPARA K                           /00466901/ [Concomitant]
     Dosage: 20 ML, QD
     Dates: start: 20060909
  19. MIYA BM [Concomitant]
     Indication: INTESTINAL FUNCTIONAL DISORDER
     Dosage: 3 G, QD
     Route: 045
     Dates: start: 20060906

REACTIONS (7)
  - ANGINA PECTORIS [None]
  - CARDIAC FAILURE [None]
  - DEPRESSED LEVEL OF CONSCIOUSNESS [None]
  - HEART RATE INCREASED [None]
  - HYPERTENSION [None]
  - PNEUMONIA [None]
  - PNEUMONIA ASPIRATION [None]
